FAERS Safety Report 19440612 (Version 8)
Quarter: 2022Q3

REPORT INFORMATION
  Report Type: Report from Study
  Country: BR (occurrence: BR)
  Receive Date: 20210621
  Receipt Date: 20220820
  Transmission Date: 20221027
  Serious: Yes (Disabling, Other)
  Sender: FDA-Public Use
  Company Number: BR-ABBVIE-21K-020-3953287-00

PATIENT
  Sex: Female
  Weight: 79 kg

DRUGS (5)
  1. SKYRIZI [Suspect]
     Active Substance: RISANKIZUMAB-RZAA
     Indication: Psoriasis
     Dosage: LOADING DOSE - WEEK 00
     Route: 058
     Dates: start: 20210104, end: 20210104
  2. SKYRIZI [Suspect]
     Active Substance: RISANKIZUMAB-RZAA
     Dosage: LOADING DOSE - WEEK 04
     Route: 058
     Dates: start: 202102, end: 202102
  3. SKYRIZI [Suspect]
     Active Substance: RISANKIZUMAB-RZAA
     Route: 058
     Dates: start: 2021, end: 202108
  4. SKYRIZI [Suspect]
     Active Substance: RISANKIZUMAB-RZAA
     Dosage: IN USE
     Route: 058
  5. SALINE [Suspect]
     Active Substance: SODIUM CHLORIDE
     Indication: Limb operation
     Dosage: SOLUTION
     Route: 065
     Dates: start: 202105

REACTIONS (33)
  - Asthma [Recovered/Resolved]
  - Open fracture [Recovered/Resolved]
  - Cataract [Recovered/Resolved]
  - Visual impairment [Recovering/Resolving]
  - Local reaction [Recovered/Resolved]
  - Limb injury [Recovered/Resolved]
  - Fall [Recovered/Resolved]
  - Procedural pain [Recovering/Resolving]
  - Balance disorder [Unknown]
  - Blood pressure fluctuation [Unknown]
  - Nervousness [Unknown]
  - Emotional disorder [Unknown]
  - Blister [Not Recovered/Not Resolved]
  - Anxiety [Unknown]
  - Gait inability [Unknown]
  - Pruritus [Recovering/Resolving]
  - Limb injury [Recovering/Resolving]
  - Vision blurred [Recovered/Resolved]
  - Blister [Recovering/Resolving]
  - Blister [Not Recovered/Not Resolved]
  - Blister [Not Recovered/Not Resolved]
  - Pruritus [Recovered/Resolved]
  - Rash [Unknown]
  - Blister [Recovering/Resolving]
  - Blister [Not Recovered/Not Resolved]
  - Wound [Recovering/Resolving]
  - Adverse reaction [Recovered/Resolved]
  - Unevaluable event [Unknown]
  - Psoriasis [Recovering/Resolving]
  - Psoriasis [Recovered/Resolved]
  - Drug ineffective [Unknown]
  - Psoriasis [Not Recovered/Not Resolved]
  - Therapeutic product effect incomplete [Unknown]

NARRATIVE: CASE EVENT DATE: 20210101
